FAERS Safety Report 9866790 (Version 2)
Quarter: 2014Q1

REPORT INFORMATION
  Report Type: Spontaneous
  Country: US (occurrence: US)
  Receive Date: 20140204
  Receipt Date: 20140219
  Transmission Date: 20141002
  Serious: Yes (Other)
  Sender: FDA-Public Use
  Company Number: US-009507513-1402USA000224

PATIENT
  Sex: Male

DRUGS (2)
  1. SYLATRON [Suspect]
     Indication: GINGIVAL CANCER
     Dosage: UNK
  2. SYLATRON [Suspect]
     Indication: MALIGNANT MELANOMA

REACTIONS (2)
  - Gingival cancer [Not Recovered/Not Resolved]
  - Malignant melanoma [Not Recovered/Not Resolved]
